FAERS Safety Report 4595638-5 (Version None)
Quarter: 2005Q1

REPORT INFORMATION
  Report Type: 
  Country: None (occurrence: None)
  Receive Date: 20050224
  Receipt Date: 20050217
  Transmission Date: 20050727
  Serious: Yes (Other)
  Sender: FDA-Public Use
  Company Number: GBWYE442121FEB05

PATIENT
  Age: 34 Year
  Sex: Female

DRUGS (2)
  1. EFFEXOR [Suspect]
     Dosage: 225MG DAILY ORAL; 37.5 MG 1X PER 1 DAY ORAL
     Route: 048
     Dates: start: 20040910
  2. EFFEXOR XR [Suspect]
     Dosage: 150 MG 1X PER 1 DAY ORAL
     Route: 048
     Dates: start: 20040910

REACTIONS (2)
  - DRUG WITHDRAWAL SYNDROME [None]
  - FIBROMYALGIA [None]
